FAERS Safety Report 9571599 (Version 2)
Quarter: 2013Q4

REPORT INFORMATION
  Report Type: Spontaneous
  Country: NZ (occurrence: None)
  Receive Date: 20130927
  Receipt Date: 20131011
  Transmission Date: 20140711
  Serious: Yes (Other)
  Sender: FDA-Public Use
  Company Number: IPC201309-000369

PATIENT
  Sex: Female

DRUGS (1)
  1. ATENOLOL [Suspect]
     Dosage: 50 MG (1/4 TABLET ONCE DAILY), ORAL STOPPED
     Route: 048

REACTIONS (4)
  - Dyspnoea [None]
  - Night sweats [None]
  - Gait disturbance [None]
  - Visual impairment [None]
